FAERS Safety Report 8735300 (Version 3)
Quarter: 2012Q4

REPORT INFORMATION
  Report Type: 
  Country: US (occurrence: US)
  Receive Date: 20120822
  Receipt Date: 20120829
  Transmission Date: 20130627
  Serious: Yes (Other)
  Sender: FDA-Public Use
  Company Number: US-AMGEN-USASP2012052304

PATIENT
  Age: 60 Year
  Sex: Female
  Weight: 55.33 kg

DRUGS (3)
  1. PROLIA [Suspect]
     Indication: OSTEOPOROSIS POSTMENOPAUSAL
     Dosage: 60 mg, q6mo
     Route: 058
     Dates: start: 20110421
  2. PROLIA [Suspect]
  3. ADVIL                              /00044201/ [Concomitant]

REACTIONS (5)
  - Abasia [Unknown]
  - Alopecia [Not Recovered/Not Resolved]
  - Sciatica [Recovered/Resolved]
  - Arthralgia [Not Recovered/Not Resolved]
  - Osteopenia [Not Recovered/Not Resolved]
